FAERS Safety Report 7311504-6 (Version None)
Quarter: 2011Q1

REPORT INFORMATION
  Report Type: 
  Country: None (occurrence: None)
  Receive Date: 20110224
  Receipt Date: 20110216
  Transmission Date: 20110831
  Serious: Yes (Hospitalization)
  Sender: FDA-Public Use
  Company Number: PHHY2010JP87829

PATIENT
  Age: 23 Year
  Sex: Female

DRUGS (4)
  1. TEGRETOL [Suspect]
     Indication: BIPOLAR DISORDER
     Dosage: 4200 MG DAILY
     Route: 048
     Dates: start: 20090911, end: 20090911
  2. LITHIUM CARBONATE [Suspect]
     Indication: BIPOLAR DISORDER
     Dosage: 5600 MG, UNK
     Route: 048
     Dates: start: 20090911, end: 20090911
  3. RISPERIDONE [Suspect]
     Indication: BIPOLAR DISORDER
     Dosage: 7 MG, UNK
     Route: 048
     Dates: start: 20090911, end: 20090911
  4. VALPROATE SODIUM [Suspect]
     Indication: BIPOLAR DISORDER
     Dosage: 4200 MG, UNK
     Route: 048
     Dates: start: 20090911, end: 20090911

REACTIONS (8)
  - SPUTUM INCREASED [None]
  - PYREXIA [None]
  - RESPIRATION ABNORMAL [None]
  - ATELECTASIS [None]
  - SOMNOLENCE [None]
  - INTENTIONAL OVERDOSE [None]
  - COMA [None]
  - PNEUMONIA [None]
